FAERS Safety Report 24315972 (Version 1)
Quarter: 2024Q3

REPORT INFORMATION
  Report Type: Report from Study
  Country: GB (occurrence: GB)
  Receive Date: 20240913
  Receipt Date: 20240913
  Transmission Date: 20241017
  Serious: Yes (Other)
  Sender: IPSEN
  Company Number: GB-IPSEN Group, Research and Development-2024-17836

PATIENT
  Sex: Male

DRUGS (2)
  1. LANREOTIDE ACETATE [Suspect]
     Active Substance: LANREOTIDE ACETATE
     Indication: Paraganglion neoplasm
     Route: 065
  2. LANREOTIDE ACETATE [Suspect]
     Active Substance: LANREOTIDE ACETATE
     Indication: Off label use

REACTIONS (7)
  - Abdominal pain [Unknown]
  - Flatulence [Unknown]
  - Diarrhoea [Unknown]
  - Abdominal distension [Unknown]
  - Rash pruritic [Unknown]
  - Lipoma [Unknown]
  - Off label use [Unknown]
